FAERS Safety Report 7876875-0 (Version None)
Quarter: 2011Q4

REPORT INFORMATION
  Report Type: 
  Country: None (occurrence: None)
  Receive Date: 20111031
  Receipt Date: 20100507
  Transmission Date: 20120403
  Serious: No
  Sender: FDA-Public Use
  Company Number: US-BAYER-201022071NA

PATIENT
  Sex: Female

DRUGS (3)
  1. AVELOX [Suspect]
     Indication: SINUSITIS BACTERIAL
     Dosage: UNK
     Route: 048
     Dates: end: 20100507
  2. CORTICOSTEROIDS [Concomitant]
  3. NASACORT [Concomitant]

REACTIONS (4)
  - PRURITUS [None]
  - PARAESTHESIA ORAL [None]
  - FLUSHING [None]
  - RASH MACULAR [None]
